FAERS Safety Report 7202812-8 (Version None)
Quarter: 2010Q4

REPORT INFORMATION
  Report Type: 
  Country: None (occurrence: None)
  Receive Date: 20101229
  Receipt Date: 20101221
  Transmission Date: 20110411
  Serious: Yes (Hospitalization)
  Sender: FDA-Public Use
  Company Number: US-AMGEN-KDL422506

PATIENT

DRUGS (1)
  1. ENBREL [Suspect]
     Indication: PSORIATIC ARTHROPATHY
     Dosage: UNK UNK, UNK

REACTIONS (9)
  - BACK PAIN [None]
  - BURNING SENSATION [None]
  - FEELING ABNORMAL [None]
  - GAIT DISTURBANCE [None]
  - IMPAIRED HEALING [None]
  - INCISION SITE INFECTION [None]
  - JOINT CREPITATION [None]
  - PAIN [None]
  - PAIN IN EXTREMITY [None]
